FAERS Safety Report 17256871 (Version 1)
Quarter: 2020Q1

REPORT INFORMATION
  Report Type: Spontaneous
  Country: US (occurrence: US)
  Receive Date: 20200108
  Receipt Date: 20200108
  Transmission Date: 20200409
  Serious: Yes (Other)
  Sender: FDA-Public Use
  Company Number: None

PATIENT
  Age: 56 Year
  Weight: 76.5 kg

DRUGS (1)
  1. HYDROCORTISONE IODOQUINOL [Suspect]
     Active Substance: HYDROCORTISONE\IODOQUINOL
     Indication: SKIN DISORDER
     Dosage: ?          QUANTITY:1 OUNCE(S);?
     Route: 061
     Dates: start: 20191220, end: 20200103

REACTIONS (2)
  - Product formulation issue [None]
  - Skin irritation [None]

NARRATIVE: CASE EVENT DATE: 20191221
